FAERS Safety Report 25512784 (Version 1)
Quarter: 2025Q3

REPORT INFORMATION
  Report Type: Spontaneous
  Country: US (occurrence: US)
  Receive Date: 20250703
  Receipt Date: 20250703
  Transmission Date: 20251020
  Serious: Yes (Other)
  Sender: PIERREL
  Company Number: US-PIERREL S.P.A.-2025PIR00036

PATIENT
  Sex: Female

DRUGS (2)
  1. ORABLOC [Suspect]
     Active Substance: ARTICAINE HYDROCHLORIDE\EPINEPHRINE BITARTRATE
     Indication: Anaesthesia
  2. ORABLOC [Suspect]
     Active Substance: ARTICAINE HYDROCHLORIDE\EPINEPHRINE BITARTRATE
     Indication: Endodontic procedure

REACTIONS (5)
  - Nerve injury [Unknown]
  - Gait disturbance [Unknown]
  - Hypoaesthesia [Unknown]
  - Hypoaesthesia oral [Unknown]
  - Oral discomfort [Recovering/Resolving]
